FAERS Safety Report 8483992-3 (Version None)
Quarter: 2012Q3

REPORT INFORMATION
  Report Type: 
  Country: None (occurrence: None)
  Receive Date: 20120703
  Receipt Date: 20120629
  Transmission Date: 20120928
  Serious: No
  Sender: FDA-Public Use
  Company Number: US-PFIZER INC-2012157005

PATIENT
  Sex: Male
  Weight: 83.9 kg

DRUGS (2)
  1. ALAVERT [Suspect]
     Indication: SNEEZING
     Dosage: 10 MG, DAILY
     Dates: start: 20120628
  2. ALAVERT [Suspect]
     Indication: PRURITUS

REACTIONS (2)
  - MALAISE [None]
  - HANGOVER [None]
